FAERS Safety Report 24263837 (Version 2)
Quarter: 2024Q3

REPORT INFORMATION
  Report Type: Spontaneous
  Country: CA (occurrence: CA)
  Receive Date: 20240829
  Receipt Date: 20240910
  Transmission Date: 20241017
  Serious: Yes (Other)
  Sender: CELLTRION
  Company Number: CA-PFIZER INC-202400242294

PATIENT

DRUGS (9)
  1. INFLECTRA [Suspect]
     Active Substance: INFLIXIMAB-DYYB
     Indication: Colitis ulcerative
     Dosage: INCOMPLETE DOSE, 6 WEEKS (PRESCRIBED 500 MG EVERY 6 WEEK)
     Route: 042
     Dates: start: 20240821, end: 20240821
  2. CORTISONE [Concomitant]
     Active Substance: CORTISONE
     Dosage: 1 DF
  3. MARVELON [Concomitant]
     Active Substance: DESOGESTREL\ETHINYL ESTRADIOL
     Dosage: 1 DF
  4. PREDNISONE [Concomitant]
     Active Substance: PREDNISONE
     Dosage: 35 MG, UNKNOWN FREQUENCY
     Dates: start: 20221028, end: 20221222
  5. PREDNISONE [Concomitant]
     Active Substance: PREDNISONE
     Dosage: 30 MG, UNKNOWN FREQUENCY
     Dates: start: 20230603
  6. PURINETHOL [Concomitant]
     Active Substance: MERCAPTOPURINE
     Dosage: 1 DF
     Dates: start: 20221028
  7. PLAQUENIL [Concomitant]
     Active Substance: HYDROXYCHLOROQUINE SULFATE
     Dosage: 1 DF
  8. XARELTO [Concomitant]
     Active Substance: RIVAROXABAN
     Dosage: 15 MG
  9. SULFASALAZINE [Concomitant]
     Active Substance: SULFASALAZINE
     Dosage: 1 DF

REACTIONS (12)
  - Malaise [Unknown]
  - Stress [Unknown]
  - Conjunctival hyperaemia [Recovering/Resolving]
  - Lacrimation increased [Recovered/Resolved]
  - Rhinorrhoea [Recovered/Resolved]
  - Agitation [Unknown]
  - Erythema [Recovering/Resolving]
  - Hot flush [Recovering/Resolving]
  - Abdominal pain upper [Recovering/Resolving]
  - Dyspnoea [Recovering/Resolving]
  - Off label use [Unknown]
  - Intentional product use issue [Unknown]

NARRATIVE: CASE EVENT DATE: 20240821
